FAERS Safety Report 18442125 (Version 1)
Quarter: 2020Q4

REPORT INFORMATION
  Report Type: Spontaneous
  Country: US (occurrence: US)
  Receive Date: 20201029
  Receipt Date: 20201029
  Transmission Date: 20210114
  Serious: Yes (Other)
  Sender: FDA-Public Use
  Company Number: US-PURDUE-USA-2020-0169892

PATIENT
  Sex: Male

DRUGS (3)
  1. OXYCONTIN [Suspect]
     Active Substance: OXYCODONE HYDROCHLORIDE
     Indication: PAIN
     Dosage: UNKNOWN DOSE
     Route: 048
  2. OXYCODONE HCL TABLETS (RHODES 91-490) [Suspect]
     Active Substance: OXYCODONE HYDROCHLORIDE
     Indication: PAIN
     Dosage: UNKNOWN DOSE
     Route: 048
  3. OXYCODONE HCL CR TABLETS (SIMILAR TO NDA 22-272) [Suspect]
     Active Substance: OXYCODONE HYDROCHLORIDE
     Indication: PAIN
     Dosage: UNKNOWN DOSE
     Route: 048

REACTIONS (9)
  - Overweight [Unknown]
  - Drug dependence [Unknown]
  - Impaired gastric emptying [Unknown]
  - Drug ineffective [Unknown]
  - Respiratory distress [Unknown]
  - Gastroenteritis [Unknown]
  - Constipation [Unknown]
  - Sleep apnoea syndrome [Unknown]
  - Continuous positive airway pressure [Not Recovered/Not Resolved]

NARRATIVE: CASE EVENT DATE: 2010
